FAERS Safety Report 10261389 (Version 1)
Quarter: 2014Q2

REPORT INFORMATION
  Report Type: Spontaneous
  Country: US (occurrence: US)
  Receive Date: 20140626
  Receipt Date: 20140626
  Transmission Date: 20141212
  Serious: Yes (Other)
  Sender: FDA-Public Use
  Company Number: US-BRISTOL-MYERS SQUIBB COMPANY-21030515

PATIENT
  Age: 19 Year
  Sex: Female

DRUGS (3)
  1. ABILIFY [Suspect]
     Indication: DEPRESSION
  2. LEXAPRO [Concomitant]
  3. TRILEPTAL [Concomitant]

REACTIONS (6)
  - Cyst [Unknown]
  - Hypothalamo-pituitary disorder [Unknown]
  - Dizziness [Unknown]
  - Visual acuity reduced [Unknown]
  - Galactorrhoea [Unknown]
  - Off label use [Unknown]
